FAERS Safety Report 20737081 (Version 1)
Quarter: 2022Q2

REPORT INFORMATION
  Report Type: Spontaneous
  Country: US (occurrence: US)
  Receive Date: 20220421
  Receipt Date: 20220421
  Transmission Date: 20220721
  Serious: No
  Sender: FDA-Public Use
  Company Number: US-PFIZER INC-202200211224

PATIENT
  Age: 41 Year
  Sex: Male
  Weight: 97.506 kg

DRUGS (1)
  1. BOSULIF [Suspect]
     Active Substance: BOSUTINIB MONOHYDRATE
     Indication: Chronic myeloid leukaemia
     Dosage: 100 MG, DAILY
     Route: 048
     Dates: start: 20211028

REACTIONS (3)
  - Nausea [Unknown]
  - Somnolence [Unknown]
  - Fatigue [Unknown]
